FAERS Safety Report 10236499 (Version 1)
Quarter: 2014Q2

REPORT INFORMATION
  Report Type: Spontaneous
  Country: US (occurrence: US)
  Receive Date: 20140613
  Receipt Date: 20140613
  Transmission Date: 20141212
  Serious: No
  Sender: FDA-Public Use
  Company Number: US-PFIZER INC-2014162321

PATIENT
  Age: 80 Year
  Sex: Female
  Weight: 55.33 kg

DRUGS (6)
  1. CELEBREX [Suspect]
     Indication: ARTHRITIS
     Dosage: 200 MG, 1X/DAY
     Route: 048
  2. CELEBREX [Suspect]
     Dosage: 200 MG, AS NEEDED
     Route: 048
     Dates: end: 2013
  3. LOSARTAN [Concomitant]
     Indication: HYPERTENSION
     Dosage: 100 MG, 1X/DAY
  4. PRAVASTATIN [Concomitant]
     Indication: BLOOD CHOLESTEROL INCREASED
     Dosage: 40 MG, 1X/DAY
  5. NORCO [Concomitant]
     Dosage: 7.5/325 MG, 2X/DAY
  6. ALPRAZOLAM [Concomitant]
     Indication: ANXIETY
     Dosage: 0.5 MG, 1X/DAY

REACTIONS (3)
  - Intentional product misuse [Unknown]
  - Arthritis [Unknown]
  - Nerve block [Unknown]
